FAERS Safety Report 9233853 (Version 1)
Quarter: 2013Q2

REPORT INFORMATION
  Report Type: Spontaneous
  Country: US (occurrence: US)
  Receive Date: 20130416
  Receipt Date: 20130416
  Transmission Date: 20140414
  Serious: No
  Sender: FDA-Public Use
  Company Number: US-BANPHARM-20120118

PATIENT
  Age: 75 Year
  Sex: Male
  Weight: 131.52 kg

DRUGS (5)
  1. ALEVE LIQUID GELS 220 MG [Suspect]
     Dosage: 2 DF, PRN,
     Route: 048
     Dates: start: 201208
  2. COUMADIN [Concomitant]
  3. NORVASC [Concomitant]
  4. TRICOR [Concomitant]
  5. DILTIAZEM [Concomitant]

REACTIONS (2)
  - Drug effect incomplete [Unknown]
  - Inappropriate schedule of drug administration [Unknown]
